FAERS Safety Report 15849054 (Version 1)
Quarter: 2019Q1

REPORT INFORMATION
  Report Type: Spontaneous
  Country: DE (occurrence: DE)
  Receive Date: 20190121
  Receipt Date: 20190121
  Transmission Date: 20190417
  Serious: Yes (Other)
  Sender: FDA-Public Use
  Company Number: DE-MYLANLABS-2019M1003817

PATIENT
  Age: 95 Year
  Sex: Female
  Weight: 65 kg

DRUGS (4)
  1. PREDNISOLON                        /00016201/ [Suspect]
     Active Substance: PREDNISOLONE
     Indication: PRODUCT USED FOR UNKNOWN INDICATION
     Dosage: 20 MILLIGRAM, QD
     Route: 065
  2. PANTOPRAZOLE [Suspect]
     Active Substance: PANTOPRAZOLE
     Indication: PRODUCT USED FOR UNKNOWN INDICATION
     Dosage: UNK
     Route: 065
  3. IXOTEN [Suspect]
     Active Substance: TROFOSFAMIDE
     Indication: LYMPHOMA
     Dosage: DOSE RE-INTRODUCED
     Route: 065
  4. IXOTEN [Suspect]
     Active Substance: TROFOSFAMIDE
     Dosage: 50 MILLIGRAM, QD (PALLIATIVE CARE, DOSAGE FORM: TABLET, ONCE A DAY IN MORNING)
     Route: 065
     Dates: start: 201804

REACTIONS (9)
  - Cardiac failure [Unknown]
  - Cerebrovascular insufficiency [Unknown]
  - Circulatory collapse [Unknown]
  - Dyspnoea [Recovered/Resolved]
  - Hypersensitivity [Unknown]
  - Product administration error [Unknown]
  - Memory impairment [Recovered/Resolved]
  - Fluid intake reduced [Unknown]
  - Pleural effusion [Unknown]

NARRATIVE: CASE EVENT DATE: 201804
